FAERS Safety Report 5193002-1 (Version None)
Quarter: 2006Q4

REPORT INFORMATION
  Report Type: 
  Country: None (occurrence: None)
  Receive Date: 20061228
  Receipt Date: 20060213
  Transmission Date: 20070319
  Serious: No
  Sender: FDA-Public Use
  Company Number: US-GLAXOSMITHKLINE-A0593462A

PATIENT
  Age: 60 Year
  Sex: Male

DRUGS (2)
  1. AVODART [Suspect]
     Indication: BENIGN PROSTATIC HYPERPLASIA
     Dosage: .5MG PER DAY
     Route: 048
     Dates: start: 20051101, end: 20060101
  2. ASPIRIN [Concomitant]

REACTIONS (5)
  - COUGH [None]
  - DRY SKIN [None]
  - DYSPEPSIA [None]
  - ILL-DEFINED DISORDER [None]
  - SINUS DISORDER [None]
